FAERS Safety Report 18325953 (Version 1)
Quarter: 2020Q3

REPORT INFORMATION
  Report Type: Report from Study
  Country: US (occurrence: US)
  Receive Date: 20200929
  Receipt Date: 20200929
  Transmission Date: 20201103
  Serious: Yes (Other)
  Sender: FDA-Public Use
  Company Number: US-MYLANLABS-2018M1090595

PATIENT
  Sex: Female
  Weight: 61.69 kg

DRUGS (2)
  1. GLATIRAMER ACETATE INJECTION [Suspect]
     Active Substance: GLATIRAMER ACETATE
     Indication: MULTIPLE SCLEROSIS
     Dosage: 40 MILLIGRAM, 3X
     Route: 058
  2. GLATIRAMER ACETATE INJECTION [Suspect]
     Active Substance: GLATIRAMER ACETATE
     Dosage: 40 MILLIGRAM, 3X
     Route: 058
     Dates: start: 2018

REACTIONS (9)
  - Multiple sclerosis [Unknown]
  - Hyperemesis gravidarum [Unknown]
  - Pre-eclampsia [Unknown]
  - Injection site erythema [Unknown]
  - Product use issue [Unknown]
  - Maternal exposure during pregnancy [Recovered/Resolved]
  - Weight decreased [Unknown]
  - Multiple sclerosis relapse [Unknown]
  - Injection site urticaria [Unknown]
